FAERS Safety Report 5615367-6 (Version None)
Quarter: 2008Q1

REPORT INFORMATION
  Report Type: 
  Country: None (occurrence: None)
  Receive Date: 20080206
  Receipt Date: 20080123
  Transmission Date: 20080703
  Serious: Yes (Death, Hospitalization)
  Sender: FDA-Public Use
  Company Number: GB-AMGEN-US262870

PATIENT
  Age: 9 Year
  Sex: Male
  Weight: 22 kg

DRUGS (6)
  1. ENBREL [Suspect]
     Indication: JUVENILE ARTHRITIS
     Route: 058
     Dates: start: 20000315, end: 20000501
  2. METHOTREXATE [Suspect]
     Indication: JUVENILE ARTHRITIS
     Dosage: 12.5 MG FREQUENCY UNKNOWN
     Route: 048
     Dates: start: 19981217, end: 20000331
  3. DEFLAZACORT [Suspect]
     Indication: JUVENILE ARTHRITIS
     Dosage: 48 MG FREQUENCY UNKNOWN
     Route: 048
     Dates: start: 19980917
  4. MS CONTIN [Concomitant]
     Dosage: 15 MG FREQUENCY UNKNOWN
     Route: 065
     Dates: start: 20000328
  5. GENOTROPIN [Concomitant]
     Indication: GROWTH RETARDATION
     Route: 058
     Dates: start: 19971010
  6. CIMETIDINE [Concomitant]
     Dosage: 400 MG FREQUENCY UNKNOWN
     Route: 048
     Dates: start: 19980505, end: 20000507

REACTIONS (5)
  - ARTHRITIS [None]
  - CONDITION AGGRAVATED [None]
  - IMMUNODEFICIENCY [None]
  - LOWER RESPIRATORY TRACT INFECTION [None]
  - LUNG CONSOLIDATION [None]
